FAERS Safety Report 17565921 (Version 1)
Quarter: 2020Q1

REPORT INFORMATION
  Report Type: Spontaneous
  Country: FR (occurrence: FR)
  Receive Date: 20200320
  Receipt Date: 20200320
  Transmission Date: 20200409
  Serious: Yes (Hospitalization, Other)
  Sender: FDA-Public Use
  Company Number: FR-PFIZER INC-2020115876

PATIENT
  Age: 54 Year
  Sex: Female
  Weight: 68 kg

DRUGS (11)
  1. DAPTOMYCIN. [Suspect]
     Active Substance: DAPTOMYCIN
     Indication: ANTIBIOTIC THERAPY
     Dosage: 500 MG, 1X/DAY
     Route: 042
     Dates: start: 20190104, end: 20190108
  2. VANCOMYCIN HCL [Interacting]
     Active Substance: VANCOMYCIN HYDROCHLORIDE
     Indication: ANTIBIOTIC THERAPY
     Dosage: 2 G, 1X/DAY
     Route: 042
     Dates: start: 20190104, end: 20190105
  3. SKENAN [Concomitant]
     Active Substance: MORPHINE SULFATE
     Dosage: 2 DF, 1X/DAY
     Route: 048
     Dates: start: 20190104, end: 20190107
  4. PIPERACILLIN. [Interacting]
     Active Substance: PIPERACILLIN SODIUM
     Indication: ANTIBIOTIC THERAPY
     Dosage: UNK
     Route: 042
     Dates: start: 20190104, end: 20190108
  5. GENTAMICIN. [Interacting]
     Active Substance: GENTAMICIN
     Indication: ANTIBIOTIC THERAPY
     Dosage: UNK UNK, SINGLE
     Route: 042
     Dates: start: 20190104, end: 20190104
  6. AMLOR [Concomitant]
     Active Substance: AMLODIPINE BESYLATE
     Dosage: 1 DF, 1X/DAY
     Route: 048
  7. ALPRAZOLAM. [Concomitant]
     Active Substance: ALPRAZOLAM
     Dosage: 0.25 MG, 1X/DAY
     Route: 048
  8. PARACETAMOL [Concomitant]
     Active Substance: ACETAMINOPHEN
     Dosage: 3 G, 1X/DAY
     Route: 048
     Dates: start: 20190104
  9. LOVENOX [Concomitant]
     Active Substance: ENOXAPARIN SODIUM
     Dosage: UNK
     Route: 058
     Dates: start: 20190105, end: 20190108
  10. PROFENID [Interacting]
     Active Substance: KETOPROFEN
     Indication: PAIN
     Dosage: 1 DF, SINGLE
     Route: 042
     Dates: start: 20190104, end: 20190104
  11. TAZOBACTAM [Interacting]
     Active Substance: TAZOBACTAM
     Indication: ANTIBIOTIC THERAPY
     Dosage: UNK
     Route: 042
     Dates: start: 20190104, end: 20190108

REACTIONS (2)
  - Drug interaction [Recovered/Resolved]
  - Acute kidney injury [Recovered/Resolved]

NARRATIVE: CASE EVENT DATE: 20190104
